FAERS Safety Report 25707621 (Version 1)
Quarter: 2025Q3

REPORT INFORMATION
  Report Type: Spontaneous
  Country: EU (occurrence: EU)
  Receive Date: 20250820
  Receipt Date: 20250820
  Transmission Date: 20251021
  Serious: Yes (Other)
  Sender: MYLAN
  Company Number: EU-GRUNENTHAL-2025-112130

PATIENT
  Sex: Female

DRUGS (3)
  1. TRAMADOL [Suspect]
     Active Substance: TRAMADOL
     Indication: Back pain
  2. TRAMADOL [Suspect]
     Active Substance: TRAMADOL
     Indication: Catheter site pain
     Dosage: 300 MILLIGRAM, QD (1/DAY)
  3. TRAMADOL [Suspect]
     Active Substance: TRAMADOL
     Indication: Breast engorgement

REACTIONS (7)
  - Drug dependence [Unknown]
  - Pain [Unknown]
  - Headache [Unknown]
  - Withdrawal syndrome [Unknown]
  - Drug dose titration not performed [Unknown]
  - Drug diversion [Unknown]
  - Intentional product use issue [Unknown]
